FAERS Safety Report 20430108 (Version 1)
Quarter: 2022Q1

REPORT INFORMATION
  Report Type: Report from Study
  Country: FR (occurrence: FR)
  Receive Date: 20220204
  Receipt Date: 20220204
  Transmission Date: 20220423
  Serious: Yes (Hospitalization)
  Sender: FDA-Public Use
  Company Number: FR-SERVIER-S20002402

PATIENT

DRUGS (12)
  1. ONCASPAR [Suspect]
     Active Substance: PEGASPARGASE
     Indication: Acute lymphocytic leukaemia
     Dosage: 3450 IU ON D4, D43
     Route: 042
     Dates: start: 20190530, end: 20190708
  2. DEXAMETHASONE SODIUM PHOSPHATE [Suspect]
     Active Substance: DEXAMETHASONE SODIUM PHOSPHATE
     Indication: Acute lymphocytic leukaemia
     Dosage: 13.7 MG, ON D1 TO D7 AND D15 TO D21
     Route: 048
     Dates: start: 20190527, end: 20190616
  3. VINCRISTINE SULFATE [Suspect]
     Active Substance: VINCRISTINE SULFATE
     Indication: Acute lymphocytic leukaemia
     Dosage: 2 MG, D1, D8, D15, D43 AND D50
     Route: 042
     Dates: start: 20190527, end: 20190715
  4. ADRIAMYCIN [Suspect]
     Active Substance: DOXORUBICIN HYDROCHLORIDE
     Indication: Acute lymphocytic leukaemia
     Dosage: 34.5 MG, ON D1, D8 AND D15
     Route: 042
     Dates: start: 20190527, end: 20190610
  5. THIOGUANINE [Suspect]
     Active Substance: THIOGUANINE
     Indication: Acute lymphocytic leukaemia
     Dosage: 80 MG, D29 TO D42
     Route: 048
     Dates: start: 20190624, end: 20190707
  6. CYTARABINE [Suspect]
     Active Substance: CYTARABINE
     Indication: Acute lymphocytic leukaemia
     Dosage: 30 MG, D4 AND D31
     Route: 037
     Dates: start: 20190530, end: 20190626
  7. CYTARABINE [Suspect]
     Active Substance: CYTARABINE
     Dosage: 103 MG, ON D31 TO D34 AND D38 TO D41
     Route: 037
     Dates: start: 20190626, end: 20190706
  8. CYCLOPHOSPHAMIDE [Suspect]
     Active Substance: CYCLOPHOSPHAMIDE
     Indication: Acute lymphocytic leukaemia
     Dosage: 1370 MG, ON D29
     Route: 042
     Dates: start: 20190624, end: 20190624
  9. METHOTREXATE [Suspect]
     Active Substance: METHOTREXATE
     Indication: Acute lymphocytic leukaemia
     Dosage: 12 MG, ON D4 AND D31
     Route: 037
     Dates: start: 20190530, end: 20190626
  10. HYDROCORTISONE [Suspect]
     Active Substance: HYDROCORTISONE
     Indication: Acute lymphocytic leukaemia
     Dosage: 30 MG, ON D4 AND D31
     Route: 037
     Dates: start: 20190530, end: 20190626
  11. BACTRIM [Concomitant]
     Active Substance: SULFAMETHOXAZOLE\TRIMETHOPRIM
     Indication: Product used for unknown indication
     Dosage: 800 MG, QD
     Route: 048
     Dates: start: 20180709
  12. ESOMEPRAZOLE [Concomitant]
     Active Substance: ESOMEPRAZOLE
     Indication: Product used for unknown indication
     Dosage: 10 MG, QD
     Route: 048
     Dates: start: 20180709

REACTIONS (1)
  - Febrile bone marrow aplasia [Recovered/Resolved]

NARRATIVE: CASE EVENT DATE: 20190703
